FAERS Safety Report 4332316-1 (Version None)
Quarter: 2004Q1

REPORT INFORMATION
  Report Type: 
  Country: None (occurrence: None)
  Receive Date: 20040326
  Receipt Date: 20040217
  Transmission Date: 20041129
  Serious: No
  Sender: FDA-Public Use
  Company Number: US-JNJFOC-20040203933

PATIENT
  Age: 84 Year
  Sex: Female

DRUGS (5)
  1. REMINYL [Suspect]
     Indication: DEMENTIA ALZHEIMER'S TYPE
     Dosage: 4 MG, 1 IN 24 HOURS, ORAL
     Route: 048
     Dates: start: 20030101
  2. MEMANTINE HCL [Concomitant]
  3. SEROQUEL [Concomitant]
  4. PAXIL [Concomitant]
  5. ESTROGEN (ESTROGEN NOS) [Concomitant]

REACTIONS (19)
  - ATRIOVENTRICULAR BLOCK FIRST DEGREE [None]
  - BLOOD PRESSURE FLUCTUATION [None]
  - CANDIDIASIS [None]
  - CONSTIPATION [None]
  - DELUSION [None]
  - DIVERTICULITIS [None]
  - DRUG INTERACTION POTENTIATION [None]
  - DYSPHAGIA [None]
  - HEART RATE ABNORMAL [None]
  - HIATUS HERNIA [None]
  - OEDEMA [None]
  - PARANOIA [None]
  - PERSONALITY CHANGE [None]
  - SINUS BRADYCARDIA [None]
  - SOMNOLENCE [None]
  - TREMOR [None]
  - URINARY RETENTION [None]
  - URINARY TRACT INFECTION [None]
  - VENTRICULAR HYPERTROPHY [None]
